FAERS Safety Report 4777881-5 (Version None)
Quarter: 2005Q3

REPORT INFORMATION
  Report Type: 
  Country: None (occurrence: None)
  Receive Date: 20050921
  Receipt Date: 20050914
  Transmission Date: 20060218
  Serious: Yes (Hospitalization, Other)
  Sender: FDA-Public Use
  Company Number: 2005127594

PATIENT
  Age: 54 Year
  Sex: Male

DRUGS (3)
  1. CELEBREX [Suspect]
     Indication: ILL-DEFINED DISORDER
     Dosage: ORAL
     Route: 048
  2. COZAAR [Concomitant]
  3. PURICOS (ALLOPURINOL) [Concomitant]

REACTIONS (3)
  - HYPOTENSION [None]
  - LARYNGOSPASM [None]
  - RASH [None]
